FAERS Safety Report 19634416 (Version 2)
Quarter: 2021Q3

REPORT INFORMATION
  Report Type: Spontaneous
  Country: US (occurrence: US)
  Receive Date: 20210729
  Receipt Date: 20210903
  Transmission Date: 20211014
  Serious: No
  Sender: FDA-Public Use
  Company Number: US-PFIZER INC-202100951983

PATIENT
  Age: 17 Year
  Sex: Male
  Weight: 77.11 kg

DRUGS (3)
  1. ADRENALIN (EPINEPHRINE) [Concomitant]
     Active Substance: EPINEPHRINE
     Indication: HYPOPITUITARISM
  2. GENOTROPIN [Suspect]
     Active Substance: SOMATROPIN
     Indication: BLOOD GROWTH HORMONE DECREASED
     Dosage: UNK, 1X/DAY (INJECTED NIGHTLY)
     Route: 065
     Dates: start: 200309
  3. GENOTROPIN [Suspect]
     Active Substance: SOMATROPIN
     Dosage: UNK (INCREASED DOSE), 1X/DAY (INJECTED NIGHTLY)

REACTIONS (4)
  - Drug dose omission by device [Not Recovered/Not Resolved]
  - Device mechanical issue [Unknown]
  - Poor quality device used [Unknown]
  - Device difficult to use [Unknown]

NARRATIVE: CASE EVENT DATE: 202106
